FAERS Safety Report 4465437-3 (Version None)
Quarter: 2004Q4

REPORT INFORMATION
  Report Type: 
  Country: None (occurrence: None)
  Receive Date: 20041004
  Receipt Date: 20040917
  Transmission Date: 20050328
  Serious: Yes (Hospitalization)
  Sender: FDA-Public Use
  Company Number: CN-GLAXOSMITHKLINE-B0346790A

PATIENT
  Sex: Female

DRUGS (1)
  1. BECONASE [Suspect]

REACTIONS (4)
  - ARRHYTHMIA [None]
  - MYOCARDITIS [None]
  - TACHYCARDIA [None]
  - VENTRICULAR EXTRASYSTOLES [None]
